FAERS Safety Report 7129424-9 (Version None)
Quarter: 2010Q4

REPORT INFORMATION
  Report Type: 
  Country: None (occurrence: None)
  Receive Date: 20101130
  Receipt Date: 20101117
  Transmission Date: 20110411
  Serious: Yes (Hospitalization)
  Sender: FDA-Public Use
  Company Number: FR-ALLERGAN-1015253US

PATIENT
  Age: 17 Year
  Sex: Male

DRUGS (3)
  1. SKINOREN [Suspect]
     Indication: ACNE
     Dosage: 1 DF, UNK
     Route: 003
     Dates: start: 20090101
  2. BREVOXYL [Suspect]
     Indication: ACNE
     Dosage: UNK
     Route: 003
     Dates: start: 20100901
  3. ECNACLYN/BOVINE LACTOFERRIN [Concomitant]
     Indication: SUPPLEMENTATION THERAPY
     Dosage: UNK
     Dates: start: 20100701

REACTIONS (1)
  - CYTOLYTIC HEPATITIS [None]
